FAERS Safety Report 12461645 (Version 1)
Quarter: 2016Q2

REPORT INFORMATION
  Report Type: Spontaneous
  Country: SE (occurrence: SE)
  Receive Date: 20160613
  Receipt Date: 20160613
  Transmission Date: 20160815
  Serious: Yes (Hospitalization)
  Sender: FDA-Public Use
  Company Number: SE-PFIZER INC-2016292474

PATIENT
  Age: 35 Year
  Sex: Male

DRUGS (3)
  1. XANOR [Suspect]
     Active Substance: ALPRAZOLAM
     Dosage: 8 MG, UNK
     Dates: start: 20160510, end: 20160510
  2. COCILLANA-ETYFIN /06573601/ [Suspect]
     Active Substance: ETHYLMORPHINE HYDROCHLORIDE\HERBALS
     Dosage: 250 ML, UNK
     Dates: start: 20160510, end: 20160510
  3. LYRICA [Suspect]
     Active Substance: PREGABALIN
     Dosage: 900 MG, UNK
     Dates: start: 20160510, end: 20160510

REACTIONS (3)
  - Depressed level of consciousness [Recovered/Resolved]
  - Toxicity to various agents [Recovered/Resolved]
  - Overdose [Recovered/Resolved]

NARRATIVE: CASE EVENT DATE: 20160510
